FAERS Safety Report 17417809 (Version 1)
Quarter: 2020Q1

REPORT INFORMATION
  Report Type: Spontaneous
  Country: US (occurrence: US)
  Receive Date: 20200213
  Receipt Date: 20200213
  Transmission Date: 20200409
  Serious: No
  Sender: FDA-Public Use
  Company Number: US-ELI_LILLY_AND_COMPANY-US202001013298

PATIENT
  Age: 14 Year
  Sex: Male

DRUGS (2)
  1. EMGALITY [Suspect]
     Active Substance: GALCANEZUMAB-GNLM
     Indication: MIGRAINE
     Dosage: 1 DOSAGE FORM, UNKNOWN
     Route: 065
     Dates: start: 20191229
  2. RIZATRIPTAN. [Concomitant]
     Active Substance: RIZATRIPTAN
     Indication: MIGRAINE
     Dosage: 10 MG, UNKNOWN
     Route: 065

REACTIONS (3)
  - Off label use [Unknown]
  - Sinus headache [Unknown]
  - Influenza like illness [Unknown]

NARRATIVE: CASE EVENT DATE: 20191229
